FAERS Safety Report 13884525 (Version 1)
Quarter: 2017Q3

REPORT INFORMATION
  Report Type: Spontaneous
  Country: US (occurrence: US)
  Receive Date: 20170821
  Receipt Date: 20170821
  Transmission Date: 20171127
  Serious: No
  Sender: FDA-Public Use
  Company Number: US-MYLANLABS-2017M1010192

PATIENT
  Sex: Female
  Weight: 49.89 kg

DRUGS (3)
  1. CLORAZEPATE DIPOTASSIUM TABLETS, USP [Suspect]
     Active Substance: CLORAZEPATE DIPOTASSIUM
     Indication: ANXIETY
  2. SYNTHROID [Concomitant]
     Active Substance: LEVOTHYROXINE SODIUM
     Indication: PRODUCT USED FOR UNKNOWN INDICATION
     Dosage: UNK
  3. CLORAZEPATE DIPOTASSIUM TABLETS, USP [Suspect]
     Active Substance: CLORAZEPATE DIPOTASSIUM
     Indication: SLEEP DISORDER
     Dosage: 3.75 MG, QD (QPM)
     Route: 048
     Dates: start: 2013

REACTIONS (1)
  - Alopecia [Not Recovered/Not Resolved]

NARRATIVE: CASE EVENT DATE: 2016
